FAERS Safety Report 4930913-3 (Version None)
Quarter: 2006Q1

REPORT INFORMATION
  Report Type: 
  Country: None (occurrence: None)
  Receive Date: 20060227
  Receipt Date: 20060221
  Transmission Date: 20060701
  Serious: Yes (Death, Hospitalization)
  Sender: FDA-Public Use
  Company Number: 200610162BFR

PATIENT
  Age: 66 Year
  Sex: Female
  Weight: 76 kg

DRUGS (5)
  1. SORAFENIB [Suspect]
     Indication: RENAL CELL CARCINOMA STAGE UNSPECIFIED
     Dosage: 400 MG, BID, ORAL
     Route: 048
     Dates: start: 20060210, end: 20060213
  2. RIVOTRIL [Concomitant]
  3. DAFALGAN [Concomitant]
  4. COAPROVEL [Concomitant]
  5. ZOMETA [Concomitant]

REACTIONS (3)
  - ANAEMIA [None]
  - HEPATIC HAEMORRHAGE [None]
  - RETROPERITONEAL HAEMORRHAGE [None]
